FAERS Safety Report 16121233 (Version 2)
Quarter: 2019Q2

REPORT INFORMATION
  Report Type: Spontaneous
  Country: JP (occurrence: JP)
  Receive Date: 20190327
  Receipt Date: 20190416
  Transmission Date: 20190711
  Serious: Yes (Hospitalization)
  Sender: FDA-Public Use
  Company Number: JP-009507513-1902JPN001476J

PATIENT
  Age: 66 Year
  Sex: Male
  Weight: 55 kg

DRUGS (25)
  1. EMEND [Concomitant]
     Active Substance: APREPITANT
     Dosage: 125 MILLIGRAM
     Route: 048
     Dates: start: 20190206, end: 20190206
  2. DEXART [Concomitant]
     Active Substance: DEXAMETHASONE SODIUM PHOSPHATE
     Dosage: 3 MILLILITER
     Route: 051
     Dates: start: 20190116, end: 20190116
  3. ALOXI [Concomitant]
     Active Substance: PALONOSETRON HYDROCHLORIDE
     Dosage: 1 DOSAGE FORM
     Route: 041
     Dates: start: 20190305, end: 20190305
  4. POLARAMINE [Concomitant]
     Active Substance: DEXCHLORPHENIRAMINE MALEATE
     Dosage: 1 DOSAGE FORM
     Route: 051
     Dates: start: 20190116, end: 20190116
  5. POLARAMINE [Concomitant]
     Active Substance: DEXCHLORPHENIRAMINE MALEATE
     Dosage: 1 DOSAGE FORM
     Route: 051
     Dates: start: 20190305, end: 20190305
  6. KEYTRUDA [Suspect]
     Active Substance: PEMBROLIZUMAB
     Indication: NON-SMALL CELL LUNG CANCER
     Dosage: 200 MILLIGRAM, Q3W
     Route: 041
     Dates: start: 20190116
  7. CARBOPLATIN. [Suspect]
     Active Substance: CARBOPLATIN
     Dosage: 682 MILLIGRAM, Q3W
     Route: 041
     Dates: start: 20190206, end: 20190206
  8. PACLITAXEL. [Suspect]
     Active Substance: PACLITAXEL
     Indication: NON-SMALL CELL LUNG CANCER
     Dosage: 318 MILLIGRAM, Q3W
     Route: 041
     Dates: start: 20190116, end: 20190116
  9. PACLITAXEL. [Suspect]
     Active Substance: PACLITAXEL
     Dosage: 318 MILLIGRAM, Q3W
     Route: 041
     Dates: start: 20190206, end: 20190206
  10. PACLITAXEL. [Suspect]
     Active Substance: PACLITAXEL
     Dosage: 315 MILLIGRAM, Q3W
     Route: 041
     Dates: start: 20190305, end: 20190305
  11. RANITIDINE. [Concomitant]
     Active Substance: RANITIDINE
     Dosage: 1 DOSAGE FORM
     Route: 051
     Dates: start: 20190116, end: 20190116
  12. RANITIDINE. [Concomitant]
     Active Substance: RANITIDINE
     Dosage: 1 DOSAGE FORM
     Route: 051
     Dates: start: 20190305, end: 20190305
  13. ALOXI [Concomitant]
     Active Substance: PALONOSETRON HYDROCHLORIDE
     Dosage: 1 DOSAGE FORM
     Route: 041
     Dates: start: 20190206, end: 20190206
  14. ALOXI [Concomitant]
     Active Substance: PALONOSETRON HYDROCHLORIDE
     Dosage: 1 DOSAGE FORM
     Route: 041
     Dates: start: 20190116, end: 20190116
  15. CARBOPLATIN. [Suspect]
     Active Substance: CARBOPLATIN
     Indication: NON-SMALL CELL LUNG CANCER
     Dosage: 720 MILLIGRAM, Q3W
     Route: 041
     Dates: start: 20190116, end: 20190116
  16. DEXART [Concomitant]
     Active Substance: DEXAMETHASONE SODIUM PHOSPHATE
     Dosage: 3 MILLILITER
     Route: 051
     Dates: start: 20190305, end: 20190305
  17. RANITIDINE. [Concomitant]
     Active Substance: RANITIDINE
     Dosage: 1 DOSAGE FORM
     Route: 051
     Dates: start: 20190206, end: 20190206
  18. CARBOPLATIN. [Suspect]
     Active Substance: CARBOPLATIN
     Dosage: 635 MILLIGRAM, Q3W
     Route: 041
     Dates: start: 20190305, end: 20190305
  19. EMEND [Concomitant]
     Active Substance: APREPITANT
     Dosage: 125 MILLIGRAM
     Route: 048
     Dates: start: 20190116, end: 20190116
  20. CALONAL [Concomitant]
     Active Substance: ACETAMINOPHEN
     Dosage: 500 MILLIGRAM
     Route: 048
     Dates: start: 20190206, end: 20190206
  21. CALONAL [Concomitant]
     Active Substance: ACETAMINOPHEN
     Dosage: 500 MILLIGRAM
     Route: 048
     Dates: start: 20190305, end: 20190305
  22. POLARAMINE [Concomitant]
     Active Substance: DEXCHLORPHENIRAMINE MALEATE
     Dosage: 1 DOSAGE FORM
     Route: 051
     Dates: start: 20190206, end: 20190206
  23. EMEND [Concomitant]
     Active Substance: APREPITANT
     Dosage: 125 MILLIGRAM
     Route: 048
     Dates: start: 20190305, end: 20190305
  24. CALONAL [Concomitant]
     Active Substance: ACETAMINOPHEN
     Dosage: 500 MILLIGRAM
     Route: 048
     Dates: start: 20190116, end: 20190116
  25. DEXART [Concomitant]
     Active Substance: DEXAMETHASONE SODIUM PHOSPHATE
     Dosage: 3 MILLILITER
     Route: 051
     Dates: start: 20190206, end: 20190206

REACTIONS (2)
  - Proctitis [Unknown]
  - Colitis [Recovered/Resolved]

NARRATIVE: CASE EVENT DATE: 20190209
